FAERS Safety Report 6647811-X (Version None)
Quarter: 2010Q1

REPORT INFORMATION
  Report Type: 
  Country: None (occurrence: None)
  Receive Date: 20100318
  Receipt Date: 20100309
  Transmission Date: 20100710
  Serious: Yes (Other)
  Sender: FDA-Public Use
  Company Number: 2010SP014799

PATIENT
  Age: 79 Year
  Sex: Male

DRUGS (9)
  1. REMERON [Suspect]
     Indication: DRUG USE FOR UNKNOWN INDICATION
     Dosage: 45 MG; QD;PO
     Route: 048
     Dates: start: 20100213, end: 20100217
  2. TRAMADOL HCL [Suspect]
     Indication: DRUG USE FOR UNKNOWN INDICATION
     Dosage: 50 MG;TID;PO
     Route: 048
  3. CORDARONE [Suspect]
     Indication: DRUG USE FOR UNKNOWN INDICATION
     Dosage: 600 MG;QD;PO
     Route: 048
     Dates: start: 20100213
  4. ACCURETIC [Concomitant]
  5. METFIN [Concomitant]
  6. ADALAT [Concomitant]
  7. RANITIDINE [Concomitant]
  8. PROSTA-URGENIN [Concomitant]
  9. ZOLPIDEM [Concomitant]

REACTIONS (6)
  - AGITATION [None]
  - MUSCLE RIGIDITY [None]
  - PERSONALITY CHANGE [None]
  - SEROTONIN SYNDROME [None]
  - SOMNOLENCE [None]
  - TREMOR [None]
